FAERS Safety Report 4993548-2 (Version None)
Quarter: 2006Q2

REPORT INFORMATION
  Report Type: 
  Country: None (occurrence: None)
  Receive Date: 20060504
  Receipt Date: 20060504
  Transmission Date: 20061013
  Serious: Yes (Other)
  Sender: FDA-Public Use
  Company Number: None

PATIENT
  Sex: Female
  Weight: 89.8122 kg

DRUGS (10)
  1. BYETTA [Suspect]
     Indication: DIABETES MELLITUS INADEQUATE CONTROL
     Dosage: 10 MCG BID SC
     Route: 058
     Dates: start: 20050901
  2. FUROSEMIDE [Concomitant]
  3. LIPITOR [Concomitant]
  4. ENALAPRIL MALEATE [Concomitant]
  5. ASPIRIN [Concomitant]
  6. FISH OIL [Concomitant]
  7. METFORMIN [Concomitant]
  8. POTASSIUM CHLORIDE [Concomitant]
  9. M.V.I. [Concomitant]
  10. NEXIUM [Concomitant]

REACTIONS (1)
  - RENAL FAILURE ACUTE [None]
